FAERS Safety Report 9169851 (Version 3)
Quarter: 2013Q2

REPORT INFORMATION
  Report Type: Spontaneous
  Country: US (occurrence: US)
  Receive Date: 20130319
  Receipt Date: 20130603
  Transmission Date: 20140414
  Serious: No
  Sender: FDA-Public Use
  Company Number: US-009507513-1303USA007778

PATIENT
  Sex: Female

DRUGS (3)
  1. PEGINTRON [Suspect]
     Indication: HEPATITIS C
     Dosage: UNK
     Dates: start: 20130228
  2. REBETOL [Suspect]
     Indication: HEPATITIS C
     Dosage: UNK
     Route: 048
     Dates: start: 20130228
  3. VICTRELIS [Suspect]
     Indication: HEPATITIS C
     Dosage: UNK
     Route: 048
     Dates: start: 20130328

REACTIONS (8)
  - Lip dry [Unknown]
  - Dehydration [Unknown]
  - Injection site reaction [Unknown]
  - Anaemia [Unknown]
  - Haemoglobin decreased [Unknown]
  - Lip dry [Unknown]
  - Headache [Unknown]
  - Fatigue [Unknown]
